FAERS Safety Report 7210165-4 (Version None)
Quarter: 2010Q4

REPORT INFORMATION
  Report Type: 
  Country: None (occurrence: None)
  Receive Date: 20101223
  Receipt Date: 20101213
  Transmission Date: 20110411
  Serious: Yes (Death)
  Sender: FDA-Public Use
  Company Number: 08-180

PATIENT
  Age: 27 Year
  Sex: Male
  Weight: 158.3054 kg

DRUGS (5)
  1. FAZACLO ODT [Suspect]
     Indication: SCHIZOAFFECTIVE DISORDER
     Dosage: 600 MG PO DAILY
     Route: 048
     Dates: start: 20060522, end: 20070416
  2. INVEGA [Concomitant]
  3. ZYPREXA [Concomitant]
  4. DEPAKOTE [Concomitant]
  5. COGENTIN [Concomitant]

REACTIONS (2)
  - GRANULOCYTOPENIA [None]
  - THERAPEUTIC AGENT TOXICITY [None]
